FAERS Safety Report 12299472 (Version 2)
Quarter: 2016Q2

REPORT INFORMATION
  Report Type: Spontaneous
  Country: US (occurrence: US)
  Receive Date: 20160425
  Receipt Date: 20160426
  Transmission Date: 20160815
  Serious: Yes (Other)
  Sender: FDA-Public Use
  Company Number: US-TAKEDA-2016TUS006803

PATIENT
  Age: 24 Year
  Sex: Male

DRUGS (1)
  1. PREVACID [Suspect]
     Active Substance: LANSOPRAZOLE
     Indication: EOSINOPHILIC OESOPHAGITIS
     Dosage: 30 MG, BID
     Route: 048

REACTIONS (3)
  - Splenomegaly [Unknown]
  - Thrombocytopenia [Unknown]
  - Liver function test abnormal [Unknown]
